FAERS Safety Report 17459884 (Version 3)
Quarter: 2020Q3

REPORT INFORMATION
  Report Type: Spontaneous
  Country: US (occurrence: US)
  Receive Date: 20200226
  Receipt Date: 20200728
  Transmission Date: 20201102
  Serious: No
  Sender: FDA-Public Use
  Company Number: US-SA-2020SA049860

PATIENT

DRUGS (3)
  1. DUPIXENT [Suspect]
     Active Substance: DUPILUMAB
     Dosage: 300 MG,OTHER
     Route: 058
     Dates: start: 202002
  2. DUPIXENT [Suspect]
     Active Substance: DUPILUMAB
     Indication: ECZEMA
     Dosage: UNK
  3. DUPIXENT [Suspect]
     Active Substance: DUPILUMAB
     Dosage: 600 MG,1X
     Route: 058
     Dates: start: 201902, end: 201902

REACTIONS (6)
  - Dry skin [Unknown]
  - Product use issue [Unknown]
  - Rash macular [Unknown]
  - Blepharitis [Unknown]
  - Eye inflammation [Unknown]
  - Inflammation [Unknown]

NARRATIVE: CASE EVENT DATE: 20200227
